FAERS Safety Report 7744568-6 (Version None)
Quarter: 2011Q3

REPORT INFORMATION
  Report Type: 
  Country: None (occurrence: None)
  Receive Date: 20110912
  Receipt Date: 20110831
  Transmission Date: 20111222
  Serious: Yes (Hospitalization)
  Sender: FDA-Public Use
  Company Number: JP-PFIZER INC-2011209602

PATIENT
  Age: 52 Year
  Sex: Male
  Weight: 62 kg

DRUGS (12)
  1. LOSARTAN POTASSIUM [Concomitant]
     Dosage: UNK
  2. ISOSORBIDE DINITRATE [Concomitant]
     Dosage: UNK
  3. MIGLITOL [Suspect]
     Dosage: 50 MG, 2X/DAY
     Route: 048
     Dates: start: 20101008, end: 20101107
  4. MIGLITOL [Suspect]
     Dosage: 25 MG, 2X/DAY
     Route: 048
     Dates: start: 20101108
  5. NOVORAPID [Concomitant]
     Dosage: UNK
  6. BISOPROLOL FUMARATE [Concomitant]
     Dosage: UNK
  7. URSO 250 [Concomitant]
     Dosage: UNK
  8. MIGLITOL [Suspect]
     Indication: TYPE 2 DIABETES MELLITUS
     Dosage: 25 MG, 2X/DAY
     Route: 048
     Dates: start: 20100906, end: 20101007
  9. LASIX [Concomitant]
     Dosage: UNK
  10. NOVOLIN N [Concomitant]
     Dosage: UNK
  11. LANIRAPID [Concomitant]
     Dosage: UNK
  12. RABEPRAZOLE SODIUM [Concomitant]

REACTIONS (1)
  - HEPATIC FUNCTION ABNORMAL [None]
